FAERS Safety Report 9420390 (Version 1)
Quarter: 2013Q3

REPORT INFORMATION
  Report Type: Spontaneous
  Country: US (occurrence: US)
  Receive Date: 20130725
  Receipt Date: 20130725
  Transmission Date: 20140515
  Serious: No
  Sender: FDA-Public Use
  Company Number: US-ABBOTT-13P-163-1065591-00

PATIENT
  Sex: Female

DRUGS (4)
  1. SYNTHROID [Suspect]
     Indication: THYROID DISORDER
  2. LEVOXYL [Suspect]
     Indication: THYROID DISORDER
     Dates: start: 201007
  3. LEVOXYL [Suspect]
     Dosage: DOSE REDUCED
  4. AMLODIPINE [Concomitant]
     Indication: BLOOD PRESSURE ABNORMAL

REACTIONS (9)
  - Malaise [Unknown]
  - Drug intolerance [Unknown]
  - Tri-iodothyronine decreased [Unknown]
  - Anxiety [Not Recovered/Not Resolved]
  - Nervousness [Not Recovered/Not Resolved]
  - Irritability [Unknown]
  - Abdominal discomfort [Unknown]
  - Tremor [Unknown]
  - Insomnia [Unknown]
